FAERS Safety Report 8091109-2 (Version None)
Quarter: 2012Q1

REPORT INFORMATION
  Report Type: 
  Country: None (occurrence: None)
  Receive Date: 20120129
  Receipt Date: 20111021
  Transmission Date: 20120608
  Serious: No
  Sender: FDA-Public Use
  Company Number: US-ABBOTT-11P-163-0867154-00

PATIENT
  Age: 57 Year
  Sex: Female

DRUGS (13)
  1. HUMIRA [Suspect]
     Indication: RHEUMATOID ARTHRITIS
     Dosage: INTERRUPTED
     Dates: start: 20101001
  2. BUTROTION [Concomitant]
     Indication: DEPRESSION
  3. XANAX [Concomitant]
     Indication: PRODUCT USED FOR UNKNOWN INDICATION
     Dosage: AT HOUR OF SLEEP
  4. METHOTREXATE [Concomitant]
     Indication: PRODUCT USED FOR UNKNOWN INDICATION
     Dosage: 6 TABLETS
  5. PERCOCET [Concomitant]
     Indication: ARTHRALGIA
     Dosage: 1 TABLET EVERY 4 HOURS AS NEEDED
  6. BENADRYL [Concomitant]
     Indication: INSOMNIA
  7. SYNTHROID [Concomitant]
     Indication: HYPOTHYROIDISM
  8. TRAZODONE HCL [Concomitant]
     Indication: PRODUCT USED FOR UNKNOWN INDICATION
     Dosage: 1-2 TABLETS AT HOUR OF SLEEP
  9. MULTI-VITAMIN [Concomitant]
     Indication: PRODUCT USED FOR UNKNOWN INDICATION
  10. IRON [Concomitant]
     Indication: PRODUCT USED FOR UNKNOWN INDICATION
  11. FUROSEMIDE [Concomitant]
     Indication: PRODUCT USED FOR UNKNOWN INDICATION
     Dosage: ONCE DAILY AS NEEDED
  12. PLAQUENIL [Concomitant]
     Indication: PRODUCT USED FOR UNKNOWN INDICATION
  13. VIMOVO [Concomitant]
     Indication: RHEUMATOID ARTHRITIS
     Dosage: NAPROSEN/NEXIUM 500MG/20MG

REACTIONS (1)
  - NASOPHARYNGITIS [None]
